FAERS Safety Report 7824588-3 (Version None)
Quarter: 2011Q4

REPORT INFORMATION
  Report Type: 
  Country: None (occurrence: None)
  Receive Date: 20111019
  Receipt Date: 20111007
  Transmission Date: 20120403
  Serious: Yes (Other)
  Sender: FDA-Public Use
  Company Number: BE-ELI_LILLY_AND_COMPANY-BE201110002329

PATIENT
  Age: 17 Year
  Sex: Male

DRUGS (1)
  1. STRATTERA [Suspect]
     Dosage: 60 MG, QD

REACTIONS (1)
  - JAUNDICE [None]
